FAERS Safety Report 5993074-8 (Version None)
Quarter: 2008Q4

REPORT INFORMATION
  Report Type: 
  Country: None (occurrence: None)
  Receive Date: 20081212
  Receipt Date: 20081210
  Transmission Date: 20090506
  Serious: Yes (Disabling)
  Sender: FDA-Public Use
  Company Number: FR-BRISTOL-MYERS SQUIBB COMPANY-14440168

PATIENT
  Age: 67 Year
  Sex: Female

DRUGS (2)
  1. TAXOL [Suspect]
     Indication: BREAST CANCER METASTATIC
     Dosage: FREQUENCY: FROM DAY 1 TO DAY 8 + FROM DAY 15 TO DAY 21 THERAPY DATES: 26-MAR-2008 TO 05-AUG-2008
     Route: 042
     Dates: start: 20080326, end: 20080326
  2. AVASTIN [Suspect]
     Indication: BREAST CANCER METASTATIC
     Dosage: 25MG/ML FREQUENCY: DAY 1 + FROM DAY 15 TO DAY 21 THERAPY DATES: 26-MAR-2008 TO 05-AUG-2008
     Dates: start: 20080326, end: 20080326

REACTIONS (1)
  - NEURODEGENERATIVE DISORDER [None]
